FAERS Safety Report 6821683-2 (Version None)
Quarter: 2010Q3

REPORT INFORMATION
  Report Type: 
  Country: None (occurrence: None)
  Receive Date: 20100707
  Receipt Date: 20100624
  Transmission Date: 20110219
  Serious: Yes (Other)
  Sender: FDA-Public Use
  Company Number: BR-AMGEN-QUU421256

PATIENT
  Age: 70 Year
  Sex: Female
  Weight: 74 kg

DRUGS (13)
  1. ENBREL [Suspect]
     Indication: RHEUMATOID ARTHRITIS
     Route: 058
     Dates: start: 20100101
  2. DIAZEPAM [Concomitant]
     Dosage: UNSPECIFIED
  3. OMEPRAZOLE [Concomitant]
     Dosage: UNSPECIFIED
  4. ATORVASTATIN [Concomitant]
     Dosage: UNSPECIFIED
  5. TENORETIC 100 [Concomitant]
     Dosage: UNSPECIFIED
  6. FLUOXETINE [Concomitant]
     Dosage: UNSPECIFIED
  7. LOSARTAN POSTASSIUM [Concomitant]
     Dosage: UNSPECIFIED
  8. DIMENHYDRINATE [Concomitant]
     Dosage: UNSPECIFIED
  9. DICLOFENAC SODIUM [Concomitant]
     Dosage: UNSPECIFIED
  10. VYTORIN [Concomitant]
     Dosage: UNSPECIFIED
  11. TYLEX [Concomitant]
     Dosage: UNSPECIFIED
  12. PREDNISOLONE [Concomitant]
     Dosage: UNSPECIFIED
  13. TRAMAL [Concomitant]
     Dosage: UNSPECIFIED

REACTIONS (5)
  - DEAFNESS [None]
  - DYSENTERY [None]
  - HEART RATE INCREASED [None]
  - NECK PAIN [None]
  - VOMITING [None]
